FAERS Safety Report 25661571 (Version 1)
Quarter: 2025Q3

REPORT INFORMATION
  Report Type: Spontaneous
  Country: US (occurrence: US)
  Receive Date: 20250808
  Receipt Date: 20250808
  Transmission Date: 20251020
  Serious: No
  Sender: INCYTE
  Company Number: US-EVENT-003715

PATIENT

DRUGS (1)
  1. OPZELURA [Suspect]
     Active Substance: RUXOLITINIB PHOSPHATE
     Indication: Dermatitis atopic
     Dosage: APPLY TOPICALLY TO AFFECTED AREA ON FACE AND BODY ONE TIME DAILY

REACTIONS (4)
  - Dermatitis atopic [Unknown]
  - Product distribution issue [Unknown]
  - Product availability issue [Not Recovered/Not Resolved]
  - Product dose omission issue [Unknown]
